FAERS Safety Report 8144159 (Version 4)
Quarter: 2012Q4

REPORT INFORMATION
  Report Type: 
  Country: US (occurrence: US)
  Receive Date: 20110920
  Receipt Date: 20121214
  Transmission Date: 20130627
  Serious: Yes (Other)
  Sender: FDA-Public Use
  Company Number: US-ROCHE-790603

PATIENT
  Age: 68 Year
  Sex: Female

DRUGS (1)
  1. AVASTIN [Suspect]
     Indication: MACULAR DEGENERATION
     Dosage: Injected in Right eye
     Route: 050

REACTIONS (5)
  - Endophthalmitis [Recovering/Resolving]
  - Visual impairment [Unknown]
  - Visual acuity reduced [Unknown]
  - Visual acuity reduced [Unknown]
  - Product quality issue [Unknown]
